FAERS Safety Report 9047464 (Version 1)
Quarter: 2013Q1

REPORT INFORMATION
  Report Type: Report from Study
  Country: US (occurrence: US)
  Receive Date: 20130201
  Receipt Date: 20130201
  Transmission Date: 20140127
  Serious: No
  Sender: FDA-Public Use
  Company Number: US-ABBOTT-13P-163-1030079-00

PATIENT
  Age: 58 Year
  Sex: Female

DRUGS (17)
  1. HUMIRA [Suspect]
     Indication: CROHN^S DISEASE
     Route: 058
     Dates: start: 20120809
  2. HUMIRA [Suspect]
     Dates: start: 20121106
  3. OMEPRAZOLE [Concomitant]
     Indication: GASTROOESOPHAGEAL REFLUX DISEASE
     Dosage: 20 MG DAILY
  4. ALLOPURINOL [Concomitant]
     Indication: GOUT
     Dosage: 300 MG DAILY
  5. PREMARIN [Concomitant]
     Indication: HORMONE REPLACEMENT THERAPY
     Dosage: 0.425 MG DAILY
  6. ESCITALOPRAM OXALATE [Concomitant]
     Indication: ANXIETY
     Dosage: 20 MG DAILY
  7. TRAZODONE HCL [Concomitant]
     Indication: INSOMNIA
     Dosage: AT BEDTIME
  8. HYOSCYAMINE SULFATE [Concomitant]
     Indication: GASTRIC DISORDER
  9. SAVELLA [Concomitant]
     Indication: ANXIETY
  10. COLCRYS [Concomitant]
     Indication: CROHN^S DISEASE
     Dosage: 0.06 MG DAILY
  11. OXYCODONE [Concomitant]
     Indication: PAIN
     Dosage: 5MG/325MG
  12. ASPIRIN [Concomitant]
     Indication: PROPHYLAXIS
     Dosage: 81 MG DAILY
  13. FOLIC ACID [Concomitant]
     Indication: PRODUCT USED FOR UNKNOWN INDICATION
     Dosage: 1 MG DAILY
  14. CALCIUM WITH VITAMIN D [Concomitant]
     Indication: SUPPLEMENTATION THERAPY
     Dosage: DAILY
  15. AMLODIPINE BESYLATE [Concomitant]
     Indication: PRODUCT USED FOR UNKNOWN INDICATION
     Dosage: 10 MG DAILY
  16. ATENOLOL [Concomitant]
     Indication: PRODUCT USED FOR UNKNOWN INDICATION
     Dosage: 100 MG DAILY
  17. LOSARTAN POTASSIUM [Concomitant]
     Indication: HYPERTENSION
     Dosage: 100 MG DAILY

REACTIONS (2)
  - Dry mouth [Not Recovered/Not Resolved]
  - Drug ineffective [Recovering/Resolving]
